FAERS Safety Report 18853976 (Version 3)
Quarter: 2022Q2

REPORT INFORMATION
  Report Type: Spontaneous
  Country: US (occurrence: US)
  Receive Date: 20210205
  Receipt Date: 20220418
  Transmission Date: 20220721
  Serious: Yes (Other)
  Sender: FDA-Public Use
  Company Number: US-PFIZER INC-2021105207

PATIENT
  Age: 61 Year
  Sex: Female

DRUGS (2)
  1. XELJANZ XR [Suspect]
     Active Substance: TOFACITINIB CITRATE
     Dosage: 11 MG
     Dates: start: 20200701
  2. XELJANZ XR [Suspect]
     Active Substance: TOFACITINIB CITRATE
     Dosage: 11 MG
     Dates: start: 20201225

REACTIONS (7)
  - Spinal operation [Unknown]
  - Dyspnoea [Unknown]
  - Pulmonary mass [Unknown]
  - Weight increased [Unknown]
  - Anaemia [Unknown]
  - Electric shock sensation [Unknown]
  - Migraine [Unknown]

NARRATIVE: CASE EVENT DATE: 20211201
